FAERS Safety Report 10629278 (Version 1)
Quarter: 2014Q4

REPORT INFORMATION
  Report Type: Spontaneous
  Country: US (occurrence: US)
  Receive Date: 20141205
  Receipt Date: 20141205
  Transmission Date: 20150529
  Serious: Yes (Disabling)
  Sender: FDA-Public Use
  Company Number: US-BRISTOL-MYERS SQUIBB COMPANY-21245972

PATIENT
  Age: 60 Year
  Sex: Female

DRUGS (5)
  1. COGENTIN [Concomitant]
     Active Substance: BENZTROPINE MESYLATE
  2. NEURONTIN [Concomitant]
     Active Substance: GABAPENTIN
  3. PROZAC [Concomitant]
     Active Substance: FLUOXETINE HYDROCHLORIDE
  4. ABILIFY [Suspect]
     Active Substance: ARIPIPRAZOLE
     Indication: SCHIZOAFFECTIVE DISORDER
     Dosage: BETWEEN 2 MG AND 15 MG
     Route: 048
  5. HALCION [Concomitant]
     Active Substance: TRIAZOLAM

REACTIONS (1)
  - Tardive dyskinesia [Recovering/Resolving]
